FAERS Safety Report 15621204 (Version 1)
Quarter: 2018Q4

REPORT INFORMATION
  Report Type: Spontaneous
  Country: US (occurrence: US)
  Receive Date: 20181115
  Receipt Date: 20181115
  Transmission Date: 20190205
  Serious: Yes (Other)
  Sender: FDA-Public Use
  Company Number: US-PURDUE PHARMA-USA-2018-0145204

PATIENT
  Sex: Male

DRUGS (1)
  1. OXYCONTIN [Suspect]
     Active Substance: OXYCODONE HYDROCHLORIDE
     Indication: ABDOMINAL PAIN
     Route: 048

REACTIONS (6)
  - Malaise [Unknown]
  - Cardiac disorder [Unknown]
  - Drug withdrawal syndrome [Unknown]
  - Formication [Unknown]
  - Drug dependence [Unknown]
  - Cyanosis [Unknown]
